FAERS Safety Report 5007043-8 (Version None)
Quarter: 2006Q2

REPORT INFORMATION
  Report Type: 
  Country: None (occurrence: None)
  Receive Date: 20060517
  Receipt Date: 20060502
  Transmission Date: 20061013
  Serious: Yes (Other)
  Sender: FDA-Public Use
  Company Number: PHFR2006GB01590

PATIENT
  Age: 79 Year
  Sex: Female

DRUGS (8)
  1. DICLOFENAC(DICLOFENAC) [Suspect]
     Indication: ANALGESIC THERAPY
     Dosage: 50 MG, TID, ORAL
     Route: 048
     Dates: end: 20060401
  2. CITALOPRAM (NGX)(CITALOPRAM) [Suspect]
     Indication: DEPRESSION
     Dosage: 30 MG, QD/MANE, ORAL
     Route: 048
     Dates: end: 20060401
  3. ACETYLSALICYLIC ACID (NGX)(ACETYLSALICYLIC ACID) [Suspect]
     Indication: ANTIPLATELET THERAPY
     Dosage: 75 MG, QD/MANE, ORAL
     Route: 048
     Dates: end: 20060401
  4. ZOPICLONE (ZOPICLONE) [Concomitant]
  5. SOTALOL HCL [Concomitant]
  6. OMEPRAZOLE [Concomitant]
  7. AMISULPRIDE (AMISULPRIDE) [Concomitant]
  8. TETRABENAZINE (TETRABENAZINE) [Concomitant]

REACTIONS (2)
  - GASTROINTESTINAL HAEMORRHAGE [None]
  - IRON DEFICIENCY ANAEMIA [None]
